FAERS Safety Report 8673243 (Version 2)
Quarter: 2012Q4

REPORT INFORMATION
  Report Type: 
  Country: US (occurrence: US)
  Receive Date: 20120719
  Receipt Date: 20120828
  Transmission Date: 20130627
  Serious: Yes (Hospitalization)
  Sender: FDA-Public Use
  Company Number: US-ACTELION-A-NJ2012-68647

PATIENT
  Age: 52 Year
  Sex: Female

DRUGS (3)
  1. TRACLEER [Suspect]
     Indication: PULMONARY ARTERIAL HYPERTENSION
     Dosage: 125 mg, bid
     Route: 048
     Dates: start: 20101214
  2. TRACLEER [Suspect]
     Dosage: 62.5 mg, bid
     Route: 048
     Dates: start: 20100330, end: 20101213
  3. SILDENAFIL [Concomitant]

REACTIONS (8)
  - Influenza [Unknown]
  - Fall [Recovering/Resolving]
  - Hip fracture [Recovering/Resolving]
  - Hip arthroplasty [Recovering/Resolving]
  - Dialysis [Recovering/Resolving]
  - Shunt thrombosis [Recovering/Resolving]
  - International normalised ratio increased [Recovering/Resolving]
  - Dyspnoea [Recovering/Resolving]
